FAERS Safety Report 4387250-8 (Version None)
Quarter: 2004Q2

REPORT INFORMATION
  Report Type: 
  Country: None (occurrence: None)
  Receive Date: 20040630
  Receipt Date: 20040330
  Transmission Date: 20050107
  Serious: No
  Sender: FDA-Public Use
  Company Number: US-GLAXOSMITHKLINE-A0505114A

PATIENT
  Age: 4 Year
  Sex: Female

DRUGS (4)
  1. ADVAIR HFA [Suspect]
     Indication: ASTHMA
     Route: 055
     Dates: start: 20040327, end: 20040327
  2. ALBUTEROL [Concomitant]
  3. ORAPRED [Concomitant]
  4. UNKNOWN MEDICATION [Concomitant]

REACTIONS (3)
  - COUGH [None]
  - ERYTHEMA [None]
  - HYPERSENSITIVITY [None]
